FAERS Safety Report 4307370-3 (Version None)
Quarter: 2004Q1

REPORT INFORMATION
  Report Type: 
  Country: None (occurrence: None)
  Receive Date: 20040226
  Receipt Date: 20040216
  Transmission Date: 20041129
  Serious: Yes (Hospitalization)
  Sender: FDA-Public Use
  Company Number: 163-20785-04020401

PATIENT
  Age: 46 Year
  Sex: Female

DRUGS (1)
  1. THALOMID [Suspect]
     Indication: METASTASES TO LUNG
     Dosage: 100 MG, DAILY, ORAL
     Route: 048
     Dates: start: 20040113

REACTIONS (2)
  - LUNG NEOPLASM MALIGNANT [None]
  - MALIGNANT NEOPLASM PROGRESSION [None]
